FAERS Safety Report 19441395 (Version 2)
Quarter: 2022Q3

REPORT INFORMATION
  Report Type: Spontaneous
  Country: US (occurrence: US)
  Receive Date: 20210621
  Receipt Date: 20220701
  Transmission Date: 20221027
  Serious: No
  Sender: FDA-Public Use
  Company Number: US-THERAPEUTICSMD-2021TMD01832

PATIENT
  Sex: Female
  Weight: 60.771 kg

DRUGS (8)
  1. IMVEXXY [Suspect]
     Active Substance: ESTRADIOL
     Indication: Dyspareunia
     Dosage: 10 ?G, 2X/WEEK
     Route: 067
     Dates: start: 202103
  2. SYNTHROID [Suspect]
     Active Substance: LEVOTHYROXINE SODIUM
     Indication: Thyroid disorder
     Dosage: 112 ?G
     Dates: end: 202104
  3. SYNTHROID [Suspect]
     Active Substance: LEVOTHYROXINE SODIUM
     Dosage: 125 ?G
     Dates: start: 202104
  4. PRAVASTATIN [Concomitant]
     Active Substance: PRAVASTATIN
  5. CALCIUM [Concomitant]
     Active Substance: CALCIUM
  6. JOINT SUPPLEMENT [Concomitant]
  7. GLUCOSAMINE [Concomitant]
     Active Substance: GLUCOSAMINE
  8. XYZAL [Concomitant]
     Active Substance: LEVOCETIRIZINE DIHYDROCHLORIDE

REACTIONS (6)
  - Anxiety [Recovering/Resolving]
  - Emotional disorder [Recovering/Resolving]
  - Performance status decreased [Unknown]
  - Abnormal behaviour [Recovering/Resolving]
  - Somnolence [Unknown]
  - Thyroid function test abnormal [Unknown]

NARRATIVE: CASE EVENT DATE: 20210101
